FAERS Safety Report 4406690-1 (Version None)
Quarter: 2004Q3

REPORT INFORMATION
  Report Type: 
  Country: None (occurrence: None)
  Receive Date: 20040715
  Receipt Date: 20040708
  Transmission Date: 20050211
  Serious: Yes (Hospitalization)
  Sender: FDA-Public Use
  Company Number: 200410371BFR

PATIENT
  Age: 82 Year
  Sex: Female

DRUGS (5)
  1. GLUCOR (ACARBOSE) [Suspect]
     Indication: DIABETES MELLITUS
     Dosage: 100 MG, QD, ORAL
     Route: 048
     Dates: start: 20040405, end: 20040511
  2. GINKOR FORT [Concomitant]
  3. DIAMICRON [Concomitant]
  4. DEBRIDAT ^PARKE DAVIS^ [Concomitant]
  5. AVLOCARDYL [Concomitant]

REACTIONS (2)
  - CYTOLYTIC HEPATITIS [None]
  - HYPERTENSION [None]
